FAERS Safety Report 7046353-X (Version None)
Quarter: 2010Q4

REPORT INFORMATION
  Report Type: 
  Country: None (occurrence: None)
  Receive Date: 20101014
  Receipt Date: 20101007
  Transmission Date: 20110411
  Serious: Yes (Hospitalization, Other)
  Sender: FDA-Public Use
  Company Number: FR-PFIZER INC-2009164483

PATIENT
  Age: 24 Year
  Sex: Female

DRUGS (5)
  1. VFEND [Suspect]
     Indication: ASPERGILLOSIS
     Dosage: UNK
     Route: 048
     Dates: start: 20050301, end: 20080101
  2. VFEND [Suspect]
     Dosage: UNK
     Dates: end: 20080816
  3. CORTANCYL [Suspect]
     Dosage: UNK
     Route: 048
     Dates: start: 20060101
  4. PROGRAF [Concomitant]
     Dosage: UNK
     Route: 048
     Dates: start: 20060101
  5. CELLCEPT [Concomitant]
     Dosage: UNK
     Route: 048
     Dates: start: 20060101

REACTIONS (3)
  - ACTINIC KERATOSIS [None]
  - PHOTOSENSITIVITY REACTION [None]
  - SQUAMOUS CELL CARCINOMA [None]
